FAERS Safety Report 12399805 (Version 1)
Quarter: 2016Q2

REPORT INFORMATION
  Report Type: Report from Study
  Country: JP (occurrence: JP)
  Receive Date: 20160524
  Receipt Date: 20160524
  Transmission Date: 20160815
  Serious: Yes (Other)
  Sender: FDA-Public Use
  Company Number: JP-B.I. PHARMACEUTICALS,INC./RIDGEFIELD-2016-BI-12440BI

PATIENT
  Age: 64 Year
  Sex: Female
  Weight: 54 kg

DRUGS (5)
  1. BI 10773 [Suspect]
     Active Substance: EMPAGLIFLOZIN
     Indication: TYPE 2 DIABETES MELLITUS
     Dosage: 25 MG
     Route: 065
     Dates: start: 20150903, end: 20160106
  2. LOXONIN [Concomitant]
     Active Substance: LOXOPROFEN SODIUM
     Indication: LUMBAR SPINAL STENOSIS
     Route: 048
     Dates: start: 20110104
  3. CRESTOR [Concomitant]
     Active Substance: ROSUVASTATIN CALCIUM
     Indication: DYSLIPIDAEMIA
     Dosage: 2.5 MG
     Route: 048
     Dates: start: 20151105
  4. BI 10773 [Suspect]
     Active Substance: EMPAGLIFLOZIN
     Indication: TYPE 2 DIABETES MELLITUS
     Route: 065
     Dates: start: 20151224, end: 20160106
  5. DIOVAN [Concomitant]
     Active Substance: VALSARTAN
     Indication: HYPERTENSION
     Dosage: 80 MG
     Route: 048
     Dates: start: 20130530

REACTIONS (2)
  - Hydronephrosis [Recovered/Resolved]
  - Urine output increased [Recovered/Resolved]

NARRATIVE: CASE EVENT DATE: 20160104
